FAERS Safety Report 4618396-4 (Version None)
Quarter: 2005Q2

REPORT INFORMATION
  Report Type: 
  Country: None (occurrence: None)
  Receive Date: 20050310
  Receipt Date: 20040218
  Transmission Date: 20051028
  Serious: No
  Sender: FDA-Public Use
  Company Number: 04H-163-0251207-00

PATIENT
  Sex: Male
  Weight: 78 kg

DRUGS (1)
  1. NITROGLYCERIN [Suspect]
     Indication: HYPOTENSION
     Dosage: 117 ML/HR, INTRAVENOUS
     Route: 042
     Dates: start: 20040122, end: 20040123

REACTIONS (3)
  - ACCIDENTAL OVERDOSE [None]
  - HYPOTENSION [None]
  - MEDICATION ERROR [None]
